FAERS Safety Report 20534834 (Version 3)
Quarter: 2022Q2

REPORT INFORMATION
  Report Type: Spontaneous
  Country: US (occurrence: US)
  Receive Date: 20220302
  Receipt Date: 20220627
  Transmission Date: 20220721
  Serious: No
  Sender: FDA-Public Use
  Company Number: US-MICRO LABS LIMITED-ML2022-00411

PATIENT
  Age: 82 Year
  Sex: Female

DRUGS (7)
  1. ASPIRIN\DIPYRIDAMOLE [Suspect]
     Active Substance: ASPIRIN\DIPYRIDAMOLE
     Indication: Pain
     Dosage: 1 CAPSULE IN THE MORNING AND 1 AT NIGHT (STRENGTH: 25MG/200 MG)
  2. TYLENOL [Concomitant]
     Active Substance: ACETAMINOPHEN
     Indication: Pain
     Dosage: ONE IN THE MORNING AND ONE IN THE EVENING
  3. ANASTROZOLE [Concomitant]
     Active Substance: ANASTROZOLE
  4. ROSUVASTATIN [Concomitant]
     Active Substance: ROSUVASTATIN
  5. CALCIUM [Concomitant]
     Active Substance: CALCIUM
  6. MEMANTINE [Concomitant]
     Active Substance: MEMANTINE
  7. Citalopram. [Concomitant]

REACTIONS (5)
  - Pain [Unknown]
  - Drug ineffective [Unknown]
  - Product quality issue [Unknown]
  - Product use complaint [Unknown]
  - Wrong technique in product usage process [Unknown]
